FAERS Safety Report 23579729 (Version 1)
Quarter: 2024Q1

REPORT INFORMATION
  Report Type: Report from Study
  Country: CA (occurrence: CA)
  Receive Date: 20240229
  Receipt Date: 20240229
  Transmission Date: 20240410
  Serious: Yes (Hospitalization, Other)
  Sender: FDA-Public Use
  Company Number: CA-SUN PHARMACEUTICAL INDUSTRIES LTD-2024R1-433694

PATIENT
  Age: 13 Year
  Sex: Female

DRUGS (3)
  1. NAPROXEN [Suspect]
     Active Substance: NAPROXEN
     Indication: Anorexia nervosa
     Dosage: 250 MILLIGRAM, BID
     Route: 065
  2. METHOTREXATE [Suspect]
     Active Substance: METHOTREXATE
     Indication: Anorexia nervosa
     Dosage: 25 MILLIGRAM, WEEKLY
     Route: 065
  3. FOLIC ACID [Suspect]
     Active Substance: FOLIC ACID
     Indication: Anorexia nervosa
     Dosage: 5 MILLIGRAM, QOD
     Route: 065

REACTIONS (2)
  - Abdominal pain [Recovered/Resolved]
  - Constipation [Recovered/Resolved]
